FAERS Safety Report 6284099-6 (Version None)
Quarter: 2009Q3

REPORT INFORMATION
  Report Type: 
  Country: None (occurrence: None)
  Receive Date: 20090723
  Receipt Date: 20090715
  Transmission Date: 20100115
  Serious: Yes (Life-Threatening, Hospitalization)
  Sender: FDA-Public Use
  Company Number: 2008AL011501

PATIENT
  Age: 57 Year
  Sex: Female

DRUGS (31)
  1. DIGOXIN [Suspect]
     Indication: HEART RATE IRREGULAR
     Dosage: 0.25MG, DAILY, PO
     Route: 048
     Dates: start: 20070101, end: 20071231
  2. ALPRAZOLAM [Concomitant]
  3. OXYBUTYNIN CHLORIDE [Concomitant]
  4. KLOR-CON [Concomitant]
  5. SIMVASTATIN [Concomitant]
  6. ACTOS [Concomitant]
  7. HYDROCODONE [Concomitant]
  8. RANITIDINE [Concomitant]
  9. SULFAMETHOXAZOLE [Concomitant]
  10. CARTIA XT [Concomitant]
  11. CLOTRIMAZOLE [Concomitant]
  12. CLONIDINE [Concomitant]
  13. FUROSEMIDE [Concomitant]
  14. BACMIN [Concomitant]
  15. METFORMIN [Concomitant]
  16. DIOVAN [Concomitant]
  17. NITROGLYCERIN [Concomitant]
  18. ZOCOR [Concomitant]
  19. ASPIRIN [Concomitant]
  20. DITROPAN [Concomitant]
  21. TOPROL-XL [Concomitant]
  22. LORTAB [Concomitant]
  23. MULTI-VITAMIN [Concomitant]
  24. ALLOPURINOL [Concomitant]
  25. ZITHROMAX [Concomitant]
  26. NITROSTAT [Concomitant]
  27. XANAX [Concomitant]
  28. FLUTICASONE [Concomitant]
  29. LORATADINE [Concomitant]
  30. AZITHROMYCIN [Concomitant]
  31. CLINDAMYCIN [Concomitant]

REACTIONS (14)
  - BRADYCARDIA [None]
  - DEHYDRATION [None]
  - DIZZINESS [None]
  - EAR DISCOMFORT [None]
  - EAR PAIN [None]
  - FALL [None]
  - GAIT DISTURBANCE [None]
  - INJURY [None]
  - NASOPHARYNGITIS [None]
  - NAUSEA [None]
  - ORTHOSTATIC HYPOTENSION [None]
  - RENAL FAILURE [None]
  - SINUSITIS [None]
  - WEIGHT INCREASED [None]
